FAERS Safety Report 8551713-1 (Version None)
Quarter: 2012Q3

REPORT INFORMATION
  Report Type: 
  Country: None (occurrence: None)
  Receive Date: 20120730
  Receipt Date: 20100918
  Transmission Date: 20120928
  Serious: Yes (Other)
  Sender: FDA-Public Use
  Company Number: CO-PFIZER INC-2012181400

PATIENT
  Age: 76 Year
  Sex: Male

DRUGS (3)
  1. LIPITOR [Suspect]
     Indication: DYSLIPIDAEMIA
     Dosage: 10 MG, 1X/DAY
  2. OLMESARTAN MEDOXOMIL [Suspect]
     Indication: HYPERTENSION
     Dosage: 20 MG, 1X/DAY
  3. ENALAPRIL [Concomitant]
     Indication: HYPERTENSION
     Dosage: 20 MG, 1X/DAY

REACTIONS (5)
  - RENAL FAILURE CHRONIC [None]
  - HAEMATURIA [None]
  - PYURIA [None]
  - EXERCISE LACK OF [None]
  - CRYSTALLURIA [None]
